FAERS Safety Report 19894548 (Version 2)
Quarter: 2021Q4

REPORT INFORMATION
  Report Type: Spontaneous
  Country: US (occurrence: US)
  Receive Date: 20210929
  Receipt Date: 20211116
  Transmission Date: 20220303
  Serious: No
  Sender: FDA-Public Use
  Company Number: US-GSKCCFUS-CASE-01176859_AE-68925

PATIENT
  Sex: Female

DRUGS (1)
  1. INCRUSE ELLIPTA [Suspect]
     Active Substance: UMECLIDINIUM BROMIDE
     Indication: Product used for unknown indication
     Dosage: UNK, 62.5MCG

REACTIONS (4)
  - Cough [Not Recovered/Not Resolved]
  - Incorrect dose administered [Unknown]
  - Product dose omission issue [Unknown]
  - Product complaint [Unknown]
